FAERS Safety Report 6237535-5 (Version None)
Quarter: 2009Q2

REPORT INFORMATION
  Report Type: 
  Country: None (occurrence: None)
  Receive Date: 20090619
  Receipt Date: 20090611
  Transmission Date: 20091009
  Serious: Yes (Other)
  Sender: FDA-Public Use
  Company Number: US-AMGEN-QUU351491

PATIENT
  Sex: Female

DRUGS (7)
  1. NEULASTA [Suspect]
     Indication: CHEMOTHERAPY
     Route: 065
     Dates: start: 20090410
  2. SYNTHROID [Concomitant]
  3. NEXIUM [Concomitant]
  4. PERCOCET [Concomitant]
  5. DIAZEPAM [Concomitant]
  6. ADRIAMYCIN RDF [Concomitant]
     Dates: start: 20090409
  7. CYCLOPHOSPHAMIDE [Concomitant]
     Dates: start: 20090409

REACTIONS (2)
  - FEBRILE NEUTROPENIA [None]
  - NEUTROPENIA [None]
